FAERS Safety Report 20538423 (Version 1)
Quarter: 2022Q1

REPORT INFORMATION
  Report Type: Spontaneous
  Country: HR (occurrence: HR)
  Receive Date: 20220302
  Receipt Date: 20220302
  Transmission Date: 20220423
  Serious: Yes (Life-Threatening, Hospitalization)
  Sender: FDA-Public Use
  Company Number: None

PATIENT
  Age: 83 Year
  Sex: Male

DRUGS (2)
  1. RIVAROXABAN [Suspect]
     Active Substance: RIVAROXABAN
     Indication: Atrial fibrillation
     Dosage: 15 MG
     Route: 048
     Dates: start: 20200219, end: 20210531
  2. CIPRINOL [CIPROFLOXACIN LACTATE] [Concomitant]
     Indication: Urinary tract infection
     Dosage: UNK
     Route: 048
     Dates: start: 20210525

REACTIONS (5)
  - Activated partial thromboplastin time prolonged [Recovered/Resolved]
  - Gastritis haemorrhagic [Recovered/Resolved]
  - Blood loss anaemia [Recovered/Resolved]
  - Melaena [Recovered/Resolved]
  - Prothrombin time prolonged [Recovered/Resolved]

NARRATIVE: CASE EVENT DATE: 20210101
